FAERS Safety Report 11092638 (Version 2)
Quarter: 2015Q2

REPORT INFORMATION
  Report Type: Spontaneous
  Country: NO (occurrence: None)
  Receive Date: 20150504
  Receipt Date: 20150630
  Transmission Date: 20150821
  Serious: Yes (Life-Threatening)
  Sender: FDA-Public Use
  Company Number: AMAG201500349

PATIENT
  Age: 43 Year
  Sex: Female

DRUGS (2)
  1. SANDIMMUNE [Concomitant]
     Active Substance: CYCLOSPORINE
  2. RIENSO (FERUMOXYTOL) INJECTION [Suspect]
     Active Substance: FERUMOXYTOL
     Indication: IRON DEFICIENCY
     Dosage: DILUTED IN NACL, INFUSION
     Dates: start: 20150331, end: 20150331

REACTIONS (5)
  - Feeling hot [None]
  - Erythema [None]
  - Facial pain [None]
  - Infusion related reaction [None]
  - Chest discomfort [None]

NARRATIVE: CASE EVENT DATE: 20150331
